FAERS Safety Report 10810365 (Version 1)
Quarter: 2015Q1

REPORT INFORMATION
  Report Type: Spontaneous
  Country: US (occurrence: None)
  Receive Date: 20150213
  Receipt Date: 20150213
  Transmission Date: 20150721
  Serious: Yes (Disabling, Other)
  Sender: FDA-Public Use
  Company Number: None

PATIENT
  Age: 77 Year
  Sex: Female
  Weight: 75.3 kg

DRUGS (16)
  1. NOVOLOG 70/30 DIABETIC PEN [Concomitant]
  2. LUMIGNA EYE DROPS [Concomitant]
  3. ALFALFA [Concomitant]
     Active Substance: ALFALFA\ALFALFA WHOLE
  4. BEET LEAF [Concomitant]
  5. MAGNESIUM [Concomitant]
     Active Substance: MAGNESIUM
  6. SENNA LEAF CASCARA PHSYSILLUM COMBO [Concomitant]
  7. HERBS + VITAMINS [Concomitant]
  8. MULLEIN [Concomitant]
  9. OTHERS [Concomitant]
  10. TIMOLOL MALEATE. [Suspect]
     Active Substance: TIMOLOL MALEATE
     Indication: GLAUCOMA
     Dosage: 0.5% 5ML, 1 DROP BOTH EYES, ONCE DAILY, NONE
     Dates: start: 20141126, end: 20150107
  11. EYE BRIGHT [Concomitant]
  12. CAYENNE PEPPER [Concomitant]
     Active Substance: CAPSICUM
  13. D3 [Concomitant]
     Active Substance: 25-HYDROXYCHOLECALCIFEROL, 5-TRANS-
  14. A [Concomitant]
  15. TYLENOL [Concomitant]
     Active Substance: ACETAMINOPHEN
  16. GARLIC. [Concomitant]
     Active Substance: GARLIC

REACTIONS (12)
  - Eye pain [None]
  - Syncope [None]
  - Dyspnoea [None]
  - Decreased appetite [None]
  - Ocular hyperaemia [None]
  - Constipation [None]
  - Blindness unilateral [None]
  - Arthralgia [None]
  - Lacrimation increased [None]
  - Vision blurred [None]
  - Cough [None]
  - Impaired healing [None]

NARRATIVE: CASE EVENT DATE: 20141126
